FAERS Safety Report 4645442-4 (Version None)
Quarter: 2005Q2

REPORT INFORMATION
  Report Type: 
  Country: None (occurrence: None)
  Receive Date: 20050426
  Receipt Date: 20040402
  Transmission Date: 20051028
  Serious: Yes (Hospitalization)
  Sender: FDA-Public Use
  Company Number: DE-MERCK-0404DEU00064

PATIENT
  Age: 0 Day
  Sex: Female
  Weight: 3 kg

DRUGS (2)
  1. MAXALT [Suspect]
     Indication: MIGRAINE
     Dates: start: 20011101, end: 20040101
  2. ZOLMITRIPTAN [Concomitant]

REACTIONS (1)
  - BREECH PRESENTATION [None]
